FAERS Safety Report 10038657 (Version 3)
Quarter: 2014Q2

REPORT INFORMATION
  Report Type: Spontaneous
  Country: IT (occurrence: IT)
  Receive Date: 20140326
  Receipt Date: 20140505
  Transmission Date: 20141212
  Serious: Yes (Hospitalization)
  Sender: FDA-Public Use
  Company Number: IT-JNJFOC-20140312028

PATIENT
  Age: 85 Year
  Sex: Male

DRUGS (4)
  1. PALEXIA [Suspect]
     Indication: ARTHRALGIA
     Route: 048
     Dates: start: 20131130, end: 20131130
  2. PALEXIA [Suspect]
     Indication: BACK PAIN
     Route: 048
     Dates: start: 20131130, end: 20131130
  3. COUMADIN [Concomitant]
     Indication: PRODUCT USED FOR UNKNOWN INDICATION
     Route: 048
  4. TENORETIC [Concomitant]
     Indication: PRODUCT USED FOR UNKNOWN INDICATION
     Route: 048

REACTIONS (1)
  - Confusional state [Recovered/Resolved]
